FAERS Safety Report 8850380 (Version 1)
Quarter: 2012Q4

REPORT INFORMATION
  Report Type: 
  Country: US (occurrence: US)
  Receive Date: 20121019
  Receipt Date: 20121019
  Transmission Date: 20130627
  Serious: No
  Sender: FDA-Public Use
  Company Number: US-ASTRAZENECA-2012SE11682

PATIENT
  Age: 50 Year
  Sex: Female

DRUGS (5)
  1. NEXIUM [Suspect]
     Route: 048
  2. OMEPRAZOLE [Suspect]
     Route: 048
  3. HYZAAR [Concomitant]
  4. METFORMIN [Concomitant]
  5. ZYRTEC [Concomitant]

REACTIONS (2)
  - Exposure during pregnancy [Unknown]
  - Adverse drug reaction [Unknown]
